FAERS Safety Report 5312369-4 (Version None)
Quarter: 2007Q2

REPORT INFORMATION
  Report Type: 
  Country: None (occurrence: None)
  Receive Date: 20070430
  Receipt Date: 20070419
  Transmission Date: 20071010
  Serious: Yes (Other)
  Sender: FDA-Public Use
  Company Number: US-MERCK-0608USA03197

PATIENT
  Age: 77 Year
  Sex: Female

DRUGS (13)
  1. ZETIA [Suspect]
     Indication: BLOOD CHOLESTEROL
     Route: 048
     Dates: start: 20031201, end: 20060628
  2. ZETIA [Suspect]
     Route: 048
  3. SINGULAIR [Concomitant]
     Route: 065
  4. TRICOR [Concomitant]
     Route: 065
  5. NYSTATIN [Concomitant]
     Route: 065
  6. QUININE [Concomitant]
     Route: 065
  7. PRILOSEC [Concomitant]
     Route: 065
  8. ASMANEX TWISTHALER [Concomitant]
     Route: 065
  9. ALBUTEROL [Concomitant]
     Route: 065
  10. LEVOTHYROXINE SODIUM [Concomitant]
     Route: 065
  11. PLAVIX [Concomitant]
     Route: 065
  12. SPIRIVA [Concomitant]
     Route: 065
  13. XALATAN [Concomitant]
     Route: 065

REACTIONS (31)
  - ABDOMINAL DISTENSION [None]
  - ABDOMINAL PAIN [None]
  - ABDOMINAL PAIN UPPER [None]
  - ADVERSE EVENT [None]
  - ANEURYSM [None]
  - ARTHRALGIA [None]
  - ASTHENIA [None]
  - BACK PAIN [None]
  - BLOOD URINE PRESENT [None]
  - CHEST PAIN [None]
  - CHILLS [None]
  - CORONARY ARTERY DISEASE [None]
  - DRY THROAT [None]
  - DYSPHAGIA [None]
  - DYSPNOEA [None]
  - FATIGUE [None]
  - GINGIVAL BLEEDING [None]
  - HAEMORRHAGE [None]
  - HAND DEFORMITY [None]
  - HEADACHE [None]
  - LYMPH NODE PAIN [None]
  - LYMPHADENOPATHY [None]
  - MUSCLE SPASMS [None]
  - MUSCULAR WEAKNESS [None]
  - MYALGIA [None]
  - OEDEMA PERIPHERAL [None]
  - PAIN [None]
  - PHARYNGOLARYNGEAL PAIN [None]
  - PYREXIA [None]
  - RASH [None]
  - WHEEZING [None]
